FAERS Safety Report 11126045 (Version 1)
Quarter: 2015Q2

REPORT INFORMATION
  Report Type: Report from Study
  Country: ES (occurrence: ES)
  Receive Date: 20150520
  Receipt Date: 20150520
  Transmission Date: 20150821
  Serious: Yes (Death)
  Sender: FDA-Public Use
  Company Number: ES-CELGENE-ESP-2015053096

PATIENT
  Sex: Male

DRUGS (1)
  1. AZACITIDINE. [Suspect]
     Active Substance: AZACITIDINE
     Indication: ACUTE MYELOID LEUKAEMIA
     Dosage: 8.9286 MILLIGRAM/SQ. METER
     Route: 058
     Dates: start: 20130819, end: 20150220

REACTIONS (4)
  - Death [Fatal]
  - Drug intolerance [Unknown]
  - Thrombocytopenia [Unknown]
  - Leukopenia [Unknown]
